FAERS Safety Report 21146883 (Version 1)
Quarter: 2022Q3

REPORT INFORMATION
  Report Type: Spontaneous
  Country: US (occurrence: None)
  Receive Date: 20220728
  Receipt Date: 20220728
  Transmission Date: 20221027
  Serious: Yes (Hospitalization)
  Sender: FDA-Public Use
  Company Number: None

PATIENT
  Age: 72 Year
  Sex: Female
  Weight: 110 kg

DRUGS (2)
  1. PAXLOVID [Suspect]
     Active Substance: NIRMATRELVIR\RITONAVIR
     Indication: COVID-19
     Dates: start: 20220719, end: 20220723
  2. DRONEDARONE [Suspect]
     Active Substance: DRONEDARONE
     Indication: Atrial fibrillation
     Dosage: FREQUENCY : TWICE A DAY;?

REACTIONS (8)
  - Pulmonary toxicity [None]
  - Drug interaction [None]
  - Nausea [None]
  - Vomiting [None]
  - Hyponatraemia [None]
  - Hypoxia [None]
  - Acute respiratory distress syndrome [None]
  - Product communication issue [None]

NARRATIVE: CASE EVENT DATE: 20220719
